FAERS Safety Report 8968028 (Version 2)
Quarter: 2012Q4

REPORT INFORMATION
  Report Type: 
  Country: US (occurrence: US)
  Receive Date: 20121217
  Receipt Date: 20121228
  Transmission Date: 20130627
  Serious: Yes (Death, Hospitalization)
  Sender: FDA-Public Use
  Company Number: US-B.I. PHARMACEUTICALS,INC./RIDGEFIELD-2012-BI-02420BP

PATIENT
  Age: 75 Year
  Sex: Female

DRUGS (5)
  1. PRADAXA [Suspect]
     Indication: ATRIAL FIBRILLATION
     Dosage: 300 mg
     Route: 048
  2. MANY UNSPECIFIED MEDICATIONS [Concomitant]
  3. LASIX [Concomitant]
  4. ANTIDEPRESSANTS [Concomitant]
     Indication: DEPRESSION
  5. GLYBURIDE [Concomitant]

REACTIONS (3)
  - Death [Fatal]
  - Gastrointestinal haemorrhage [Unknown]
  - Renal failure [Unknown]
